FAERS Safety Report 20758984 (Version 3)
Quarter: 2024Q1

REPORT INFORMATION
  Report Type: Spontaneous
  Country: US (occurrence: US)
  Receive Date: 20220427
  Receipt Date: 20240119
  Transmission Date: 20240410
  Serious: No
  Sender: FDA-Public Use
  Company Number: US-PFIZER INC-202101789377

PATIENT
  Age: 80 Year
  Sex: Female

DRUGS (11)
  1. XELJANZ XR [Suspect]
     Active Substance: TOFACITINIB CITRATE
     Dosage: 11 MG
  2. CHOLECALCIFEROL [Concomitant]
     Active Substance: CHOLECALCIFEROL
  3. PROLIA [Concomitant]
     Active Substance: DENOSUMAB
  4. TYLENOL [Concomitant]
     Active Substance: ACETAMINOPHEN
  5. ASPIRIN [Concomitant]
     Active Substance: ASPIRIN
  6. CALCIUM [Concomitant]
     Active Substance: CALCIUM
  7. MOTRIN [Concomitant]
     Active Substance: IBUPROFEN
  8. VITAMINS NOS [Concomitant]
     Active Substance: VITAMINS
  9. VITAMIN D NOS [Concomitant]
     Active Substance: VITAMIN D NOS
  10. PREDNISONE [Concomitant]
     Active Substance: PREDNISONE
  11. HYDROXYCHLOROQUINE [Concomitant]
     Active Substance: HYDROXYCHLOROQUINE

REACTIONS (2)
  - Hypoacusis [Unknown]
  - Infection [Not Recovered/Not Resolved]
